FAERS Safety Report 5400288-4 (Version None)
Quarter: 2007Q3

REPORT INFORMATION
  Report Type: 
  Country: None (occurrence: None)
  Receive Date: 20070730
  Receipt Date: 20070709
  Transmission Date: 20080115
  Serious: Yes (Hospitalization)
  Sender: FDA-Public Use
  Company Number: FR-ROCHE-508060

PATIENT
  Sex: Male
  Weight: 0.8 kg

DRUGS (7)
  1. ROCEPHIN [Suspect]
     Indication: CHORIOAMNIONITIS
     Dosage: THE PATIENT RECEIVED 2 GRAMS ON 02 JUN 2007 AT 3.50PM AND 1 GRAM ON 03 JUN 2007 AT 4.00PM
     Dates: start: 20070602, end: 20070603
  2. AMOXICILLIN [Concomitant]
     Dates: end: 20070531
  3. FLAGYL [Concomitant]
  4. CORTICOSTEROIDS [Concomitant]
     Dates: start: 20070528, end: 20070529
  5. GENTAMICIN [Concomitant]
     Dates: start: 20070602
  6. TIBERAL [Concomitant]
     Dates: start: 20070602
  7. PERFALGAN [Concomitant]
     Dates: start: 20070602

REACTIONS (1)
  - PREMATURE BABY [None]
